FAERS Safety Report 14214436 (Version 1)
Quarter: 2017Q4

REPORT INFORMATION
  Report Type: Spontaneous
  Country: US (occurrence: US)
  Receive Date: 20171122
  Receipt Date: 20171122
  Transmission Date: 20180321
  Serious: No
  Sender: FDA-Public Use
  Company Number: US-ROCHE-1843588

PATIENT
  Sex: Male

DRUGS (4)
  1. FLOVENT HFA [Concomitant]
     Active Substance: FLUTICASONE PROPIONATE
     Indication: ASTHMA
     Route: 055
     Dates: start: 20160223
  2. PULMOZYME [Suspect]
     Active Substance: DORNASE ALFA
     Indication: ASTHMA
     Dosage: 2.5MG/VIAL QD TO BID
     Route: 055
  3. PREVACID [Concomitant]
     Active Substance: LANSOPRAZOLE
     Indication: GASTROOESOPHAGEAL REFLUX DISEASE
     Route: 048
     Dates: start: 20150521
  4. IPRATROPIUM BROMIDE NEBULISER [Concomitant]
     Indication: ASTHMA
     Dosage: PRN
     Route: 055
     Dates: start: 20160613

REACTIONS (2)
  - Off label use [Unknown]
  - No adverse event [Unknown]
